FAERS Safety Report 8045503-6 (Version None)
Quarter: 2012Q1

REPORT INFORMATION
  Report Type: 
  Country: None (occurrence: None)
  Receive Date: 20120113
  Receipt Date: 20120110
  Transmission Date: 20120608
  Serious: Yes (Other)
  Sender: FDA-Public Use
  Company Number: US-VERTEX PHARMACEUTICALS INC.-AE-2011-005475

PATIENT
  Sex: Female

DRUGS (3)
  1. RIBASPHERE [Concomitant]
     Indication: HEPATITIS C
     Route: 048
  2. INCIVEK [Suspect]
     Indication: HEPATITIS C
     Route: 048
     Dates: start: 20110905, end: 20111101
  3. PEGASYS [Concomitant]
     Indication: HEPATITIS C
     Route: 058

REACTIONS (1)
  - INTERSTITIAL LUNG DISEASE [None]
